FAERS Safety Report 24785059 (Version 1)
Quarter: 2024Q4

REPORT INFORMATION
  Report Type: Spontaneous
  Country: US (occurrence: None)
  Receive Date: 20241224
  Receipt Date: 20241224
  Transmission Date: 20250114
  Serious: Yes (Hospitalization)
  Sender: Public
  Company Number: None

PATIENT
  Age: 49 Year
  Sex: Male
  Weight: 74.4 kg

DRUGS (3)
  1. DIETARY SUPPLEMENT [Suspect]
     Active Substance: DIETARY SUPPLEMENT
     Indication: Infection parasitic
     Dosage: FREQUENCY : 3 TIMES A DAY;?
     Route: 048
     Dates: start: 20241207, end: 20241211
  2. IVERMECTIN [Suspect]
     Active Substance: IVERMECTIN
  3. FENBENDAZOLE [Suspect]
     Active Substance: FENBENDAZOLE

REACTIONS (6)
  - Liver injury [None]
  - Aspartate aminotransferase increased [None]
  - Alanine aminotransferase increased [None]
  - Blood bilirubin increased [None]
  - Jaundice [None]
  - Chromaturia [None]

NARRATIVE: CASE EVENT DATE: 20241211
